FAERS Safety Report 19657858 (Version 2)
Quarter: 2024Q1

REPORT INFORMATION
  Report Type: Other
  Country: FR (occurrence: None)
  Receive Date: 20210804
  Receipt Date: 20240315
  Transmission Date: 20240409
  Serious: Yes (Other)
  Sender: FDA-Public Use
  Company Number: FR-ROCHE-2881081

PATIENT

DRUGS (2)
  1. PEGINTERFERON ALFA-2A [Suspect]
     Active Substance: PEGINTERFERON ALFA-2A
     Indication: Hepatitis D
     Route: 065
  2. BULEVIRTIDE [Suspect]
     Active Substance: BULEVIRTIDE
     Indication: Hepatitis D
     Route: 058

REACTIONS (14)
  - Drug-induced liver injury [Recovered/Resolved]
  - Injection site reaction [Unknown]
  - Appendicitis [Unknown]
  - Pyrexia [Unknown]
  - Cholestasis [Recovered/Resolved]
  - Astrocytoma [Unknown]
  - Chronic sinusitis [Unknown]
  - Urinary tract infection [Unknown]
  - Leukopenia [Unknown]
  - Neutropenia [Unknown]
  - Thrombocytopenia [Unknown]
  - Influenza like illness [Unknown]
  - Lymphopenia [Unknown]
  - Vitamin D deficiency [Unknown]
